FAERS Safety Report 4732923-8 (Version None)
Quarter: 2005Q3

REPORT INFORMATION
  Report Type: 
  Country: None (occurrence: None)
  Receive Date: 20050803
  Receipt Date: 20050520
  Transmission Date: 20060218
  Serious: No
  Sender: FDA-Public Use
  Company Number: US-GLAXOSMITHKLINE-A0559578A

PATIENT
  Age: 50 Year
  Sex: Male

DRUGS (2)
  1. AVANDAMET [Suspect]
     Dosage: 1MG TWICE PER DAY
     Route: 048
     Dates: start: 20050516, end: 20050519
  2. NO CONCURRENT MEDICATION [Concomitant]

REACTIONS (1)
  - BLOOD GLUCOSE INCREASED [None]
